FAERS Safety Report 4320024-2 (Version None)
Quarter: 2004Q1

REPORT INFORMATION
  Report Type: 
  Country: None (occurrence: None)
  Receive Date: 20040319
  Receipt Date: 20040122
  Transmission Date: 20041129
  Serious: Yes (Life-Threatening, Hospitalization)
  Sender: FDA-Public Use
  Company Number: WAES 0401DEU00111

PATIENT
  Age: 79 Year
  Sex: Female

DRUGS (11)
  1. AMLODIPINE BESYLATE [Concomitant]
     Indication: HYPERTENSION
     Route: 048
  2. ASPIRIN [Concomitant]
     Route: 048
  3. DOXEPIN HYDROCHLORIDE [Concomitant]
  4. ISOSORBIDE MONONITRATE [Concomitant]
     Indication: HYPERTENSION
     Route: 048
  5. MAGNESIUM ASPARTATE AND POTASSIUM ASPARTATE [Concomitant]
     Route: 048
  6. METOPROLOL SUCCINATE [Concomitant]
     Indication: HYPERTENSION
     Route: 048
  7. MOXONIDINE [Concomitant]
     Indication: HYPERTENSION
     Route: 048
  8. NAFRONYL OXALATE [Concomitant]
     Route: 048
  9. VIOXX [Suspect]
     Indication: SPINAL DISORDER
     Route: 048
     Dates: start: 20040111, end: 20040111
  10. ZOCOR [Concomitant]
     Route: 048
  11. VALSARTAN [Concomitant]
     Indication: HYPERTENSION
     Route: 048

REACTIONS (21)
  - ACCELERATED IDIOVENTRICULAR RHYTHM [None]
  - ANGIONEUROTIC OEDEMA [None]
  - BLOOD PRESSURE INCREASED [None]
  - BLOOD SODIUM DECREASED [None]
  - BRONCHITIS [None]
  - CARDIAC FAILURE [None]
  - CARDIOMEGALY [None]
  - DILATATION VENTRICULAR [None]
  - ELECTROCARDIOGRAM REPOLARISATION ABNORMALITY [None]
  - LUNG INFILTRATION [None]
  - MITRAL VALVE INCOMPETENCE [None]
  - PLEURAL EFFUSION [None]
  - PULMONARY CONGESTION [None]
  - RALES [None]
  - RESPIRATORY DEPRESSION [None]
  - RESPIRATORY FAILURE [None]
  - TRICUSPID VALVE INCOMPETENCE [None]
  - VENTRICULAR FAILURE [None]
  - VENTRICULAR HYPERTROPHY [None]
  - VENTRICULAR HYPOKINESIA [None]
  - WEIGHT DECREASED [None]
